FAERS Safety Report 9666005 (Version 1)
Quarter: 2013Q4

REPORT INFORMATION
  Report Type: Spontaneous
  Country: US (occurrence: None)
  Receive Date: 20131031
  Receipt Date: 20131031
  Transmission Date: 20140711
  Serious: Yes (Other)
  Sender: FDA-Public Use
  Company Number: AUR-APL-2013-09035

PATIENT
  Age: 49 Year
  Sex: Male

DRUGS (4)
  1. AMLODIPINE [Suspect]
     Indication: PRODUCT USED FOR UNKNOWN INDICATION
  2. CARVEDILOL [Suspect]
     Indication: PRODUCT USED FOR UNKNOWN INDICATION
  3. FOSPHENYTOIN SODIIUM [Suspect]
     Indication: STATUS EPILEPTICUS
     Route: 042
  4. LORAZEPAM (LORAZEPAM) [Concomitant]

REACTIONS (9)
  - Cardiogenic shock [None]
  - Bradycardia [None]
  - Hypotension [None]
  - Status epilepticus [None]
  - Blood glucose increased [None]
  - Drug resistance [None]
  - Apnoea [None]
  - Nodal rhythm [None]
  - Ejection fraction decreased [None]
